FAERS Safety Report 25644762 (Version 3)
Quarter: 2025Q4

REPORT INFORMATION
  Report Type: Spontaneous
  Country: US (occurrence: US)
  Receive Date: 20250805
  Receipt Date: 20251103
  Transmission Date: 20260118
  Serious: No
  Sender: SANOFI AVENTIS
  Company Number: US-SA-2025SA224452

PATIENT
  Age: 50 Year
  Sex: Female

DRUGS (4)
  1. DUPIXENT [Suspect]
     Active Substance: DUPILUMAB
     Indication: Idiopathic urticaria
     Dosage: 600 MG, 1X
     Route: 058
     Dates: start: 20250723, end: 20250723
  2. DUPIXENT [Suspect]
     Active Substance: DUPILUMAB
     Dosage: 300 MG, QOW
     Route: 058
     Dates: start: 202507
  3. YORVIPATH [Concomitant]
     Active Substance: PALOPEGTERIPARATIDE
  4. ZEPBOUND [Concomitant]
     Active Substance: TIRZEPATIDE

REACTIONS (2)
  - Viral infection [Unknown]
  - Oropharyngeal pain [Unknown]

NARRATIVE: CASE EVENT DATE: 20250101
